FAERS Safety Report 4505986-2 (Version None)
Quarter: 2004Q4

REPORT INFORMATION
  Report Type: 
  Country: None (occurrence: None)
  Receive Date: 20041025
  Receipt Date: 20031118
  Transmission Date: 20050328
  Serious: Yes (Other)
  Sender: FDA-Public Use
  Company Number: US-JNJFOC-20031000128

PATIENT
  Age: 70 Year
  Sex: Female

DRUGS (4)
  1. REMICADE [Suspect]
     Indication: RHEUMATOID ARTHRITIS
     Dosage: 600 MG, INTRAVENOUS
     Route: 042
     Dates: start: 20021202
  2. METHOTREXATE [Concomitant]
  3. NSAIDS (NSAIDS) [Concomitant]
  4. AMITRYPTILINE (AMITRIPTYLINE) [Concomitant]

REACTIONS (1)
  - PULMONARY TUBERCULOSIS [None]
